FAERS Safety Report 19920029 (Version 6)
Quarter: 2024Q4

REPORT INFORMATION
  Report Type: Spontaneous
  Country: US (occurrence: US)
  Receive Date: 20211005
  Receipt Date: 20241213
  Transmission Date: 20250115
  Serious: No
  Sender: PFIZER
  Company Number: US-PFIZER INC-2021659765

PATIENT
  Age: 75 Year
  Sex: Female

DRUGS (3)
  1. IBRANCE [Suspect]
     Active Substance: PALBOCICLIB
     Indication: Breast cancer female
     Dosage: 125 MG
  2. IBRANCE [Suspect]
     Active Substance: PALBOCICLIB
     Dosage: 100 MG
     Dates: start: 20210503
  3. IBRANCE [Suspect]
     Active Substance: PALBOCICLIB
     Dosage: 75 MG, CYCLIC, 1 TABLET DAILY FOR 21 DAYS. TAKE ON DAYS 1-21, FOLLOWED BY 7 DAYS OFF. REPEAT EVERY 2
     Route: 048

REACTIONS (8)
  - Memory impairment [Unknown]
  - Brain fog [Unknown]
  - Mental disorder [Unknown]
  - White blood cell count decreased [Unknown]
  - Headache [Unknown]
  - Bone disorder [Unknown]
  - Diarrhoea [Unknown]
  - Neoplasm progression [Unknown]
